FAERS Safety Report 5518510-2 (Version None)
Quarter: 2007Q4

REPORT INFORMATION
  Report Type: 
  Country: None (occurrence: None)
  Receive Date: 20071115
  Receipt Date: 20071108
  Transmission Date: 20080405
  Serious: Yes (Hospitalization)
  Sender: FDA-Public Use
  Company Number: BR-GILEAD-2007-0014319

PATIENT
  Sex: Male
  Weight: 2.98 kg

DRUGS (2)
  1. TENOFOVIR DISOPROXIL FUMARATE [Suspect]
     Indication: HIV INFECTION
     Dosage: SINGLE DOSE
     Route: 048
     Dates: start: 20070917, end: 20070917
  2. ZIDOVUDINE [Suspect]
     Indication: PROPHYLAXIS AGAINST HIV INFECTION
     Route: 048
     Dates: start: 20070917, end: 20071025

REACTIONS (1)
  - HAEMOGLOBIN DECREASED [None]
